FAERS Safety Report 9826186 (Version 1)
Quarter: 2013Q4

REPORT INFORMATION
  Report Type: Spontaneous
  Country: US (occurrence: None)
  Receive Date: 20131112
  Receipt Date: 20131112
  Transmission Date: 20140711
  Serious: No
  Sender: FDA-Public Use
  Company Number: E2B_00000473

PATIENT
  Age: 57 Year
  Sex: Female
  Weight: 104.33 kg

DRUGS (3)
  1. LISINOPRIL [Suspect]
     Indication: HYPERTENSION
     Route: 048
     Dates: start: 20120422, end: 20121001
  2. METOPROLOL (TABLETS) [Concomitant]
  3. PRAVASTATIN (TABLETS) [Concomitant]

REACTIONS (1)
  - Cough [None]
